FAERS Safety Report 4623100-X (Version None)
Quarter: 2005Q1

REPORT INFORMATION
  Report Type: 
  Country: None (occurrence: None)
  Receive Date: 20050328
  Receipt Date: 20050328
  Transmission Date: 20050727
  Serious: No
  Sender: FDA-Public Use
  Company Number: None

PATIENT
  Age: 32 Year
  Sex: Female
  Weight: 75.2971 kg

DRUGS (2)
  1. CARBAMAZEPINE [Suspect]
     Indication: INAPPROPRIATE ANTIDIURETIC HORMONE SECRETION
     Dosage: 400 MG    DAILY    ORAL
     Route: 048
     Dates: start: 20040824, end: 20050321
  2. LAMICTAL [Suspect]
     Dosage: 300 MG   DAILY   ORAL
     Route: 048
     Dates: start: 20040923, end: 20050321

REACTIONS (8)
  - ABDOMINAL PAIN [None]
  - DRY EYE [None]
  - FOOD CRAVING [None]
  - INAPPROPRIATE ANTIDIURETIC HORMONE SECRETION [None]
  - LETHARGY [None]
  - OEDEMA PERIPHERAL [None]
  - POLYDIPSIA [None]
  - POLYURIA [None]
